FAERS Safety Report 6065822-2 (Version None)
Quarter: 2009Q1

REPORT INFORMATION
  Report Type: 
  Country: None (occurrence: None)
  Receive Date: 20090205
  Receipt Date: 20090202
  Transmission Date: 20090719
  Serious: Yes (Other)
  Sender: FDA-Public Use
  Company Number: BR-ASTRAZENECA-2009UW02946

PATIENT
  Age: 50 Year
  Sex: Female
  Weight: 63 kg

DRUGS (2)
  1. CRESTOR [Suspect]
     Indication: HYPERCHOLESTEROLAEMIA
     Route: 048
     Dates: start: 20090122, end: 20090128
  2. ZOMIG [Concomitant]
     Indication: MIGRAINE
     Dosage: PRN
     Route: 048
     Dates: start: 20080101

REACTIONS (2)
  - MIGRAINE [None]
  - RHABDOMYOLYSIS [None]
